FAERS Safety Report 8002729-5 (Version None)
Quarter: 2011Q4

REPORT INFORMATION
  Report Type: 
  Country: None (occurrence: None)
  Receive Date: 20111222
  Receipt Date: 20111219
  Transmission Date: 20120403
  Serious: Yes (Other)
  Sender: FDA-Public Use
  Company Number: US-ELI_LILLY_AND_COMPANY-US201110006757

PATIENT
  Age: 70 Year
  Sex: Female
  Weight: 76.19 kg

DRUGS (1)
  1. ADCIRCA [Suspect]
     Indication: PULMONARY HYPERTENSION
     Dosage: 20 MG, QD
     Route: 048
     Dates: start: 20110404

REACTIONS (3)
  - HYPOTENSION [None]
  - VISUAL ACUITY REDUCED [None]
  - COLOUR BLINDNESS ACQUIRED [None]
